FAERS Safety Report 4852204-1 (Version None)
Quarter: 2005Q4

REPORT INFORMATION
  Report Type: 
  Country: None (occurrence: None)
  Receive Date: 20051213
  Receipt Date: 20051111
  Transmission Date: 20060501
  Serious: Yes (Hospitalization)
  Sender: FDA-Public Use
  Company Number: JP-JPN-A20052739

PATIENT

DRUGS (3)
  1. PAXIL [Suspect]
     Dosage: 20MG TWICE PER DAY
     Dates: end: 20051108
  2. LEXOTAN [Suspect]
  3. ATARAX [Concomitant]

REACTIONS (3)
  - DRUG EXPOSURE DURING PREGNANCY [None]
  - IRRITABILITY [None]
  - RESPIRATORY DISORDER NEONATAL [None]
